FAERS Safety Report 20655791 (Version 1)
Quarter: 2022Q1

REPORT INFORMATION
  Report Type: Spontaneous
  Country: US (occurrence: US)
  Receive Date: 20220330
  Receipt Date: 20220330
  Transmission Date: 20220423
  Serious: No
  Sender: FDA-Public Use
  Company Number: US-GW PHARMA-202203USGW01539

PATIENT
  Sex: Female
  Weight: 95.238 kg

DRUGS (2)
  1. EPIDIOLEX [Suspect]
     Active Substance: CANNABIDIOL
     Indication: Lennox-Gastaut syndrome
     Dosage: 6.30 MG/KG/DAY, 300 MILLIGRAM, BID
     Route: 048
     Dates: start: 202106
  2. EPIDIOLEX [Suspect]
     Active Substance: CANNABIDIOL
     Dosage: 4.20 MG/KG/DAY, 200 MILLIGRAM, BID
     Route: 048

REACTIONS (1)
  - Headache [Recovered/Resolved]
